FAERS Safety Report 7687993-4 (Version None)
Quarter: 2011Q3

REPORT INFORMATION
  Report Type: 
  Country: None (occurrence: None)
  Receive Date: 20110816
  Receipt Date: 20110816
  Transmission Date: 20111222
  Serious: Yes (Hospitalization)
  Sender: FDA-Public Use
  Company Number: None

PATIENT
  Age: 75 Year
  Sex: Male
  Weight: 65.1 kg

DRUGS (2)
  1. MORPHINE [Suspect]
     Indication: PAIN
     Dosage: 30 MG PO
     Route: 048
     Dates: start: 20090427, end: 20110706
  2. MORPHINE [Suspect]
     Indication: PAIN
     Dosage: 30 MG BID PO
     Route: 048
     Dates: start: 20090305, end: 20110706

REACTIONS (4)
  - HALLUCINATION [None]
  - CONFUSIONAL STATE [None]
  - AGITATION [None]
  - ATAXIA [None]
